FAERS Safety Report 20502621 (Version 3)
Quarter: 2022Q1

REPORT INFORMATION
  Report Type: Spontaneous
  Country: US (occurrence: US)
  Receive Date: 20220222
  Receipt Date: 20220325
  Transmission Date: 20220423
  Serious: No
  Sender: FDA-Public Use
  Company Number: US-GLAXOSMITHKLINE-US2022029552

PATIENT
  Age: 68 Year
  Sex: Female

DRUGS (2)
  1. ZEJULA [Suspect]
     Active Substance: NIRAPARIB
     Indication: Ovarian cancer
     Dosage: 100 MG, QD
     Route: 048
     Dates: start: 20220126
  2. ZEJULA [Suspect]
     Active Substance: NIRAPARIB
     Dosage: UNK (100MG ON DAY 1, 100MG ON DAY 2 AND 200MG ON DAY 3, THEN REPEAT)

REACTIONS (6)
  - Asthenia [Recovering/Resolving]
  - Full blood count decreased [Unknown]
  - Platelet count decreased [Unknown]
  - Ill-defined disorder [Unknown]
  - Off label use [Unknown]
  - Inappropriate schedule of product administration [Unknown]

NARRATIVE: CASE EVENT DATE: 20220126
